FAERS Safety Report 14468930 (Version 2)
Quarter: 2018Q1

REPORT INFORMATION
  Report Type: Spontaneous
  Country: JP (occurrence: JP)
  Receive Date: 20180131
  Receipt Date: 20180301
  Transmission Date: 20180509
  Serious: Yes (Death, Life-Threatening)
  Sender: FDA-Public Use
  Company Number: JP-JNJFOC-20180137644

PATIENT
  Age: 85 Year
  Sex: Male
  Weight: 43 kg

DRUGS (8)
  1. PIMOBENDAN [Concomitant]
     Active Substance: PIMOBENDAN
     Indication: CARDIAC FAILURE CHRONIC
     Route: 048
     Dates: start: 2016, end: 20171223
  2. XARELTO [Suspect]
     Active Substance: RIVAROXABAN
     Indication: CEREBROVASCULAR ACCIDENT PROPHYLAXIS
     Route: 048
     Dates: start: 20171108, end: 20171223
  3. PARIET [Concomitant]
     Active Substance: RABEPRAZOLE SODIUM
     Indication: PROPHYLAXIS AGAINST GASTROINTESTINAL ULCER
     Route: 048
     Dates: start: 20171208, end: 20171223
  4. TOLVAPTAN [Concomitant]
     Active Substance: TOLVAPTAN
     Indication: CARDIAC FAILURE CHRONIC
     Route: 048
     Dates: start: 20171026, end: 20171223
  5. XARELTO [Suspect]
     Active Substance: RIVAROXABAN
     Indication: ATRIAL FIBRILLATION
     Route: 048
     Dates: start: 20171108, end: 20171223
  6. AMIODARONE HYDROCHLORIDE. [Concomitant]
     Active Substance: AMIODARONE HYDROCHLORIDE
     Indication: ATRIAL FIBRILLATION
     Route: 048
     Dates: start: 20171121, end: 20171223
  7. LUPRAC [Concomitant]
     Active Substance: TORSEMIDE
     Indication: CARDIAC FAILURE CHRONIC
     Route: 048
     Dates: start: 2016, end: 20171223
  8. CALONAL [Concomitant]
     Active Substance: ACETAMINOPHEN
     Indication: CHONDROCALCINOSIS PYROPHOSPHATE
     Dosage: DAILY DOSE 100 MG
     Route: 048
     Dates: start: 201708, end: 20171223

REACTIONS (2)
  - Gastric ulcer haemorrhage [Recovered/Resolved with Sequelae]
  - Cardiac failure acute [Fatal]

NARRATIVE: CASE EVENT DATE: 20171223
